FAERS Safety Report 18976049 (Version 1)
Quarter: 2021Q1

REPORT INFORMATION
  Report Type: Spontaneous
  Country: CN (occurrence: CN)
  Receive Date: 20210305
  Receipt Date: 20210305
  Transmission Date: 20210420
  Serious: Yes (Other)
  Sender: FDA-Public Use
  Company Number: CN-ROCHE-2784464

PATIENT
  Age: 43 Year
  Sex: Female

DRUGS (10)
  1. TORIPALIMAB. [Concomitant]
     Active Substance: TORIPALIMAB
     Indication: RECTAL ADENOCARCINOMA
     Route: 048
     Dates: start: 20190823
  2. XELODA [Suspect]
     Active Substance: CAPECITABINE
     Indication: RECTAL ADENOCARCINOMA
     Route: 048
     Dates: start: 20170527
  3. AVASTIN [Suspect]
     Active Substance: BEVACIZUMAB
     Indication: RECTAL ADENOCARCINOMA
     Dosage: 6 CYCLES
     Route: 065
     Dates: start: 20181120, end: 20190428
  4. OXALIPLATIN. [Concomitant]
     Active Substance: OXALIPLATIN
     Indication: RECTAL ADENOCARCINOMA
     Dosage: DAY1,6 CYCLES
     Route: 041
     Dates: start: 20170527, end: 20171013
  5. OXYCODONE [Concomitant]
     Active Substance: OXYCODONE
     Dosage: 6 CYCLES, PROLONGED?RELEASE
     Dates: start: 20181120, end: 20190428
  6. RALTITREXED [Concomitant]
     Active Substance: RALTITREXED
     Indication: RECTAL ADENOCARCINOMA
     Dosage: DAY1,6 CYCLES
     Route: 041
     Dates: start: 20181120, end: 20190428
  7. IRINOTECAN [Concomitant]
     Active Substance: IRINOTECAN
     Indication: RECTAL ADENOCARCINOMA
     Dosage: DAY1,6 CYCLES
     Route: 041
     Dates: start: 20181120, end: 20190428
  8. FRUQUINTINIB. [Concomitant]
     Active Substance: FRUQUINTINIB
     Indication: RECTAL ADENOCARCINOMA
     Route: 048
     Dates: start: 20190813, end: 201908
  9. FRUQUINTINIB. [Concomitant]
     Active Substance: FRUQUINTINIB
     Route: 048
     Dates: start: 202012
  10. XELODA [Suspect]
     Active Substance: CAPECITABINE
     Dosage: DAY2 TO DAY15,6 CYCLES
     Route: 048
     Dates: end: 20171013

REACTIONS (3)
  - Renal hydrocele [Unknown]
  - Hydroureter [Unknown]
  - Stoma site haemorrhage [Unknown]

NARRATIVE: CASE EVENT DATE: 201908
